FAERS Safety Report 7984090-5 (Version None)
Quarter: 2011Q4

REPORT INFORMATION
  Report Type: 
  Country: None (occurrence: None)
  Receive Date: 20111216
  Receipt Date: 20111212
  Transmission Date: 20120403
  Serious: No
  Sender: FDA-Public Use
  Company Number: US-PFIZER INC-2011303152

PATIENT
  Sex: Male
  Weight: 68.934 kg

DRUGS (4)
  1. METOPROLOL [Concomitant]
     Indication: CARDIAC FAILURE CONGESTIVE
     Dosage: 25 MG, DAILY
     Route: 048
  2. LISINOPRIL [Concomitant]
     Indication: HYPERTENSION
     Dosage: 10 MG, DAILY
     Route: 048
  3. PREDNISONE [Concomitant]
     Indication: COLITIS ULCERATIVE
     Dosage: 10 MG, 20 MG OR 40 MG, AS NEEDED
     Route: 048
  4. PROTONIX [Suspect]
     Dosage: UNK
     Dates: start: 20080101, end: 20080101

REACTIONS (1)
  - SKIN LESION [None]
